FAERS Safety Report 8477222-6 (Version None)
Quarter: 2012Q2

REPORT INFORMATION
  Report Type: 
  Country: None (occurrence: None)
  Receive Date: 20120619
  Receipt Date: 20120605
  Transmission Date: 20120825
  Serious: Yes (Disabling, Other)
  Sender: FDA-Public Use
  Company Number: ACO_30630_2012

PATIENT
  Sex: Female

DRUGS (6)
  1. VITAMIN D4 (DIHYDROTACHYSTEROL) [Concomitant]
  2. ESTRADIOL [Concomitant]
  3. VITAMIN D [Concomitant]
  4. AMPYRA [Suspect]
     Indication: NEUROMYELITIS OPTICA
     Dosage: 10 MG
     Dates: start: 20120501, end: 20120501
  5. BACLOFEN [Concomitant]
  6. PROGESTERONE [Concomitant]

REACTIONS (1)
  - ABASIA [None]
